FAERS Safety Report 22208738 (Version 1)
Quarter: 2023Q2

REPORT INFORMATION
  Report Type: Other
  Country: US (occurrence: US)
  Receive Date: 20230413
  Receipt Date: 20230413
  Transmission Date: 20230721
  Serious: Yes (Other)
  Sender: FDA-Public Use
  Company Number: US-TRAVERE-2023TVT00051

PATIENT
  Age: 28 Year
  Sex: Female

DRUGS (27)
  1. CHOLBAM [Suspect]
     Active Substance: CHOLIC ACID
     Indication: Smith-Lemli-Opitz syndrome
     Route: 048
     Dates: start: 20220306
  2. ATROPINE [Concomitant]
     Active Substance: ATROPINE
  3. CHLORHEXIDINE [Concomitant]
     Active Substance: CHLORHEXIDINE
  4. cholesterol relief [Concomitant]
  5. CLARITIN [Concomitant]
     Active Substance: LORATADINE
  6. CRANBERRY [Concomitant]
     Active Substance: CRANBERRY
  7. CYCLOBENZAPRINE [Concomitant]
     Active Substance: CYCLOBENZAPRINE
  8. DEPLIN [Concomitant]
     Active Substance: LEVOMEFOLATE CALCIUM
  9. FLOVENT [Concomitant]
     Active Substance: FLUTICASONE PROPIONATE
  10. FLUOXETINE [Concomitant]
     Active Substance: FLUOXETINE HYDROCHLORIDE
  11. GLUCOSAMINE [Concomitant]
     Active Substance: GLUCOSAMINE
  12. HUMIRA [Concomitant]
     Active Substance: ADALIMUMAB
  13. HYDROXYZINE [Concomitant]
     Active Substance: HYDROXYZINE HYDROCHLORIDE
  14. LO LOESTRIN FE [Concomitant]
     Active Substance: ETHINYL ESTRADIOL\NORETHINDRONE ACETATE
  15. MELOXICAM [Concomitant]
     Active Substance: MELOXICAM
  16. METHOCARBAMOL [Concomitant]
     Active Substance: METHOCARBAMOL
  17. DIETARY SUPPLEMENT\HERBALS\MILK THISTLE [Concomitant]
     Active Substance: MILK THISTLE
  18. MYLANTA [Concomitant]
     Active Substance: ALUMINUM HYDROXIDE\DIMETHICONE\MAGNESIUM HYDROXIDE
  19. nanoVM [Concomitant]
  20. PREDNISOLONE [Concomitant]
     Active Substance: PREDNISOLONE
  21. PREVACID [Concomitant]
     Active Substance: LANSOPRAZOLE
  22. PROBIOTICS NOS [Concomitant]
     Active Substance: PROBIOTICS NOS
  23. SYSTANE (HYPROMELLOSE 2910 (4000 MPA.S)) [Concomitant]
     Active Substance: HYPROMELLOSE 2910 (4000 MPA.S)
  24. TOBRADEX [Concomitant]
     Active Substance: DEXAMETHASONE\TOBRAMYCIN
  25. HERBALS\TURMERIC [Concomitant]
     Active Substance: HERBALS\TURMERIC
  26. TYLENOL [Concomitant]
     Active Substance: ACETAMINOPHEN
  27. VIGAMOX [Concomitant]
     Active Substance: MOXIFLOXACIN HYDROCHLORIDE

REACTIONS (1)
  - Sympathetic ophthalmia [Unknown]

NARRATIVE: CASE EVENT DATE: 20221101
